FAERS Safety Report 7169705-6 (Version None)
Quarter: 2010Q4

REPORT INFORMATION
  Report Type: 
  Country: None (occurrence: None)
  Receive Date: 20101217
  Receipt Date: 20101209
  Transmission Date: 20110411
  Serious: Yes (Hospitalization)
  Sender: FDA-Public Use
  Company Number: JP-PFIZER INC-2010168617

PATIENT
  Age: 84 Year
  Sex: Male

DRUGS (10)
  1. LYRICA [Suspect]
     Dosage: 75 MG, 1X/DAY
     Route: 048
     Dates: start: 20100722, end: 20100729
  2. LYRICA [Suspect]
     Dosage: 75 MG, 2X/DAY
     Route: 048
     Dates: start: 20100730, end: 20100810
  3. LYRICA [Suspect]
     Dosage: 75 MG, 4X/DAY
     Route: 048
     Dates: start: 20100811, end: 20100921
  4. LYRICA [Suspect]
     Dosage: 75 MG, 6X/DAY
     Route: 048
     Dates: start: 20100922, end: 20101007
  5. LYRICA [Suspect]
     Dosage: 75 MG, 8X/DAY
     Route: 048
     Dates: start: 20101008, end: 20101129
  6. THEO-DUR [Concomitant]
     Indication: BRONCHITIS CHRONIC
     Dosage: UNK
     Route: 048
     Dates: end: 20101129
  7. MUCODYNE [Concomitant]
     Indication: BRONCHITIS CHRONIC
     Dosage: UNK
     Route: 048
     Dates: end: 20101129
  8. CLARITHROMYCIN [Concomitant]
     Indication: BRONCHITIS CHRONIC
     Dosage: UNK
     Route: 048
     Dates: end: 20101129
  9. DIGITALIS [Concomitant]
     Dosage: UNK
     Route: 048
     Dates: end: 20101129
  10. ASPIRIN [Concomitant]
     Dosage: UNK
     Route: 048

REACTIONS (7)
  - BLOOD PRESSURE DECREASED [None]
  - CREATININE RENAL CLEARANCE DECREASED [None]
  - DEPRESSED LEVEL OF CONSCIOUSNESS [None]
  - FALL [None]
  - INCORRECT DOSE ADMINISTERED [None]
  - SUBDURAL HAEMATOMA [None]
  - UNRESPONSIVE TO STIMULI [None]
